FAERS Safety Report 23937222 (Version 3)
Quarter: 2024Q3

REPORT INFORMATION
  Report Type: Report from Study
  Country: US (occurrence: US)
  Receive Date: 20240604
  Receipt Date: 20240918
  Transmission Date: 20241016
  Serious: No
  Sender: SANDOZ
  Company Number: US-SANDOZ-SDZ2024US054627

PATIENT
  Sex: Male

DRUGS (2)
  1. OMNITROPE [Suspect]
     Active Substance: SOMATROPIN
     Indication: Short stature
     Dosage: 2.0 MG (MILLIGRAM) ONCE DAILY
     Route: 058
     Dates: start: 20240524, end: 20240603
  2. OMNITROPE [Suspect]
     Active Substance: SOMATROPIN
     Indication: Short stature
     Dosage: 2.0 MG (MILLIGRAM) ONCE DAILY
     Route: 058
     Dates: start: 20240524, end: 20240603

REACTIONS (4)
  - Incorrect dose administered by device [Unknown]
  - Device leakage [Unknown]
  - Device difficult to use [Unknown]
  - Product quality issue [Unknown]
